FAERS Safety Report 10280177 (Version 2)
Quarter: 2014Q3

REPORT INFORMATION
  Report Type: Spontaneous
  Country: SK (occurrence: SK)
  Receive Date: 20140707
  Receipt Date: 20140807
  Transmission Date: 20150326
  Serious: Yes (Other)
  Sender: FDA-Public Use
  Company Number: SK-JNJFOC-20140702177

PATIENT
  Age: 39 Year
  Sex: Male

DRUGS (1)
  1. REMICADE [Suspect]
     Active Substance: INFLIXIMAB
     Indication: ANKYLOSING SPONDYLITIS
     Dosage: AT THE BEGINNING OF 2ND AND 6TH WEEKS
     Route: 042
     Dates: start: 200909

REACTIONS (3)
  - Paronychia [Recovering/Resolving]
  - Respiratory tract infection [Unknown]
  - Mycobacterium marinum infection [Recovering/Resolving]

NARRATIVE: CASE EVENT DATE: 201107
